FAERS Safety Report 16035772 (Version 3)
Quarter: 2020Q1

REPORT INFORMATION
  Report Type: Spontaneous
  Country: JP (occurrence: JP)
  Receive Date: 20190305
  Receipt Date: 20200117
  Transmission Date: 20200409
  Serious: Yes (Other)
  Sender: FDA-Public Use
  Company Number: JP-PFIZER INC-2019094455

PATIENT
  Age: 62 Year
  Sex: Male

DRUGS (4)
  1. LOXOPROFEN NA [Concomitant]
     Active Substance: LOXOPROFEN SODIUM
     Dosage: 60, 3X/DAY
     Route: 048
     Dates: start: 20181214, end: 20190124
  2. LYRICA [Suspect]
     Active Substance: PREGABALIN
     Indication: SPINAL OSTEOARTHRITIS
     Dosage: 50 MG, DAILY
     Route: 048
     Dates: start: 20181221, end: 20181221
  3. LYRICA [Suspect]
     Active Substance: PREGABALIN
     Indication: NEURALGIA
     Dosage: 25 MG, 1X/DAY (BEFORE BEDTIME)
     Route: 048
     Dates: start: 20181214, end: 20181220
  4. METHYCOBAL [Concomitant]
     Active Substance: METHYLCOBALAMIN
     Dosage: 0.5, 3X/DAY
     Dates: start: 20181207, end: 20190323

REACTIONS (2)
  - Loss of consciousness [Unknown]
  - Road traffic accident [Unknown]

NARRATIVE: CASE EVENT DATE: 201812
